FAERS Safety Report 9126570 (Version 2)
Quarter: 2013Q1

REPORT INFORMATION
  Report Type: Report from Study
  Country: AU (occurrence: AU)
  Receive Date: 20130117
  Receipt Date: 20130322
  Transmission Date: 20140127
  Serious: Yes (Hospitalization, Other)
  Sender: FDA-Public Use
  Company Number: PHHY2013AU004094

PATIENT
  Sex: Male

DRUGS (5)
  1. CLOZARIL [Suspect]
     Indication: SCHIZOPHRENIA
     Dosage: UNK UKN, UNK
     Route: 048
     Dates: start: 20121207, end: 20130101
  2. CLONAZEPAM [Concomitant]
     Indication: EPILEPSY
     Dosage: 0.5 MG, BD
     Route: 048
  3. HALOPERIDOL [Concomitant]
     Indication: AGITATION
     Dosage: 5 MG, PRN
     Route: 048
  4. LORAZEPAM [Concomitant]
     Indication: AGITATION
     Dosage: UNK (1-2 MG)
     Route: 048
  5. ZUCLOPENTHIXOL DECANOATE [Concomitant]
     Dosage: UNK UKN, UNK

REACTIONS (7)
  - Myopericarditis [Recovering/Resolving]
  - Tachyarrhythmia [Unknown]
  - Tachycardia [Unknown]
  - Lower respiratory tract infection [Recovering/Resolving]
  - Cough [Unknown]
  - Pyrexia [Unknown]
  - Fatigue [Unknown]
